FAERS Safety Report 10036466 (Version 2)
Quarter: 2014Q2

REPORT INFORMATION
  Report Type: Spontaneous
  Country: US (occurrence: US)
  Receive Date: 20140326
  Receipt Date: 20140403
  Transmission Date: 20141212
  Serious: Yes (Other)
  Sender: FDA-Public Use
  Company Number: PHEH2014US005838

PATIENT
  Sex: Male

DRUGS (5)
  1. COUMADINE [Concomitant]
     Dosage: UNK UKN, UNK
  2. NEURONTIN [Concomitant]
     Dosage: UNK UKN, UNK
  3. SIMVASTATIN [Concomitant]
     Dosage: 20 MG, UNK
  4. GLEEVEC [Suspect]
     Dosage: 400 MG, UNK
  5. INSULIN [Concomitant]
     Dosage: UNK UKN, UNK

REACTIONS (1)
  - Limb discomfort [Unknown]
